FAERS Safety Report 5308284-2 (Version None)
Quarter: 2007Q2

REPORT INFORMATION
  Report Type: 
  Country: None (occurrence: None)
  Receive Date: 20070423
  Receipt Date: 20070416
  Transmission Date: 20071010
  Serious: Yes (Hospitalization)
  Sender: FDA-Public Use
  Company Number: 2007SP007116

PATIENT
  Age: 68 Year
  Sex: Male
  Weight: 61.4 kg

DRUGS (8)
  1. TEMOZOLOMIODE (S-P) [Suspect]
     Indication: ASTROCYTOMA, LOW GRADE
     Dosage: PO
     Route: 048
     Dates: start: 20061023, end: 20070306
  2. KEPPRA [Suspect]
     Indication: ASTROCYTOMA
     Dosage: 2000 MG; QD
  3. FLOMAX (CON.) [Concomitant]
  4. KAY CIEL (CON.) [Concomitant]
  5. LAMICTAL (CON.) [Concomitant]
  6. METFORMIN (CON.) [Concomitant]
  7. WARFARIN (CON.) [Concomitant]
  8. ZOCOR (CON.) [Concomitant]

REACTIONS (4)
  - CONFUSIONAL STATE [None]
  - CONVULSION [None]
  - HYPERGLYCAEMIA [None]
  - PANCYTOPENIA [None]
